FAERS Safety Report 19923428 (Version 2)
Quarter: 2022Q2

REPORT INFORMATION
  Report Type: Spontaneous
  Country: US (occurrence: US)
  Receive Date: 20211006
  Receipt Date: 20220616
  Transmission Date: 20220721
  Serious: No
  Sender: FDA-Public Use
  Company Number: US-PFIZER INC-202101132693

PATIENT
  Age: 29 Year
  Sex: Male
  Weight: 88.45 kg

DRUGS (1)
  1. PRALIDOXIME CHLORIDE [Suspect]
     Active Substance: PRALIDOXIME CHLORIDE
     Dosage: UNK

REACTIONS (1)
  - Injury associated with device [Unknown]

NARRATIVE: CASE EVENT DATE: 20210831
